FAERS Safety Report 13459302 (Version 1)
Quarter: 2017Q2

REPORT INFORMATION
  Report Type: Spontaneous
  Country: US (occurrence: US)
  Receive Date: 20170419
  Receipt Date: 20170419
  Transmission Date: 20170830
  Serious: No
  Sender: FDA-Public Use
  Company Number: US-BAYER-2017-074547

PATIENT
  Age: 60 Year
  Sex: Female
  Weight: 64.85 kg

DRUGS (11)
  1. TRAMADOL. [Concomitant]
     Active Substance: TRAMADOL
     Indication: POLYARTHRITIS
     Dosage: 1 DF EVERY 6-8- HOURS, UNK
     Route: 048
  2. PREDNISONE. [Concomitant]
     Active Substance: PREDNISONE
     Indication: ARTHRITIS
     Dosage: 1 DF, BID
  3. BAYER ASPIRIN [Suspect]
     Active Substance: ASPIRIN
     Dosage: UNK
  4. TRIAMCINOLONE ACETONIDE. [Concomitant]
     Active Substance: TRIAMCINOLONE ACETONIDE
     Dosage: 1 DF, BID
     Route: 061
  5. ADVIL [Concomitant]
     Active Substance: IBUPROFEN
     Dosage: UNK
  6. MULTIVITAMIN [Concomitant]
     Active Substance: VITAMINS
  7. SULFASALAZINE. [Concomitant]
     Active Substance: SULFASALAZINE
     Dosage: 2 DF, TID
     Route: 048
  8. ALEVE [Suspect]
     Active Substance: NAPROXEN SODIUM
     Dosage: UNK
  9. CALCIUM [Concomitant]
     Active Substance: CALCIUM
  10. SERTRALINE [Concomitant]
     Active Substance: SERTRALINE HYDROCHLORIDE
     Indication: DEPRESSION
  11. TYLENOL PM [DIPHENHYDRAMINE HYDROCHLORIDE,PARACETAMOL] [Concomitant]
     Indication: ARTHRALGIA

REACTIONS (2)
  - Drug hypersensitivity [None]
  - Urticaria [None]
